FAERS Safety Report 9369075 (Version 4)
Quarter: 2013Q3

REPORT INFORMATION
  Report Type: Spontaneous
  Country: JP (occurrence: None)
  Receive Date: 20130621
  Receipt Date: 20130717
  Transmission Date: 20140515
  Serious: Yes (Hospitalization)
  Sender: FDA-Public Use
  Company Number: JP-2013-12260

PATIENT
  Age: 50 Year
  Sex: Female
  Weight: 52.5 kg

DRUGS (4)
  1. TOLVAPTAN [Suspect]
     Indication: CONGENITAL CYSTIC KIDNEY DISEASE
     Dosage: 90 MG MILLIGRAM(S), DAILY DOSE, ORAL
     Route: 048
     Dates: start: 20110622, end: 20130606
  2. NU-LOTAN (LOSARTAN POTASSIUM) TABLET 50 MG [Concomitant]
  3. MEILAX (ETHYL LOFLAZEPATE) TABLET, 1 MG [Concomitant]
  4. MOHRUS (KETOPROFEN) TRANSDERMAL PATCH, 40 MG [Concomitant]

REACTIONS (29)
  - Renal cyst infection [None]
  - Oral herpes [None]
  - Appendicitis [None]
  - Dehydration [None]
  - Respiratory alkalosis [None]
  - Dizziness [None]
  - Blood pressure decreased [None]
  - Abdominal distension [None]
  - Infusion site swelling [None]
  - Urine abnormality [None]
  - Viral infection [None]
  - Pyrexia [None]
  - Musculoskeletal chest pain [None]
  - Nausea [None]
  - Back pain [None]
  - Decreased appetite [None]
  - Flank pain [None]
  - Blood urea increased [None]
  - Blood urine present [None]
  - Renal impairment [None]
  - Fluid intake reduced [None]
  - Pyelonephritis [None]
  - Renal haemorrhage [None]
  - Urinary tract infection [None]
  - Glomerular filtration rate decreased [None]
  - Blood albumin decreased [None]
  - Infusion site pain [None]
  - Nephrolithiasis [None]
  - Bacterial infection [None]
